FAERS Safety Report 21959251 (Version 2)
Quarter: 2023Q2

REPORT INFORMATION
  Report Type: Spontaneous
  Country: JP (occurrence: JP)
  Receive Date: 20230206
  Receipt Date: 20230511
  Transmission Date: 20230721
  Serious: Yes (Other)
  Sender: FDA-Public Use
  Company Number: JP-ONO-2023JP002539

PATIENT
  Sex: Male

DRUGS (1)
  1. OPDIVO [Suspect]
     Active Substance: NIVOLUMAB
     Indication: Lymphoma
     Route: 041

REACTIONS (6)
  - Urinary retention [Unknown]
  - Enterocolitis [Unknown]
  - Gait inability [Unknown]
  - Blood corticotrophin abnormal [Unknown]
  - Bedridden [Unknown]
  - Off label use [Unknown]
